FAERS Safety Report 8788226 (Version 1)
Quarter: 2012Q4

REPORT INFORMATION
  Report Type: Report from Study
  Country: US (occurrence: US)
  Receive Date: 20120914
  Receipt Date: 20120914
  Transmission Date: 20130627
  Serious: Yes (Other)
  Sender: FDA-Public Use
  Company Number: US-VERTEX PHARMACEUTICAL INC.-AE-2012-011556

PATIENT
  Age: 62 Year
  Sex: Female
  Weight: 50 kg

DRUGS (15)
  1. INCIVEK [Suspect]
     Indication: HEPATITIS C
     Route: 048
  2. PEGASYS INJ [Concomitant]
     Indication: HEPATITIS C
  3. RIBAVIRIN [Concomitant]
     Indication: HEPATITIS C
     Route: 048
  4. XANAX [Concomitant]
  5. TOPAMAX [Concomitant]
  6. NAPROXEN [Concomitant]
  7. SUMATRIPTAN [Concomitant]
  8. OMEPRAZOLE [Concomitant]
  9. FENTANYL DIS [Concomitant]
  10. ONDANSETRON [Concomitant]
  11. NADOLOL [Concomitant]
  12. LEVOTHYROXIN [Concomitant]
  13. ALPRAZOLAM [Concomitant]
  14. CLONIDINE DIS [Concomitant]
  15. MIRTAZAPINE [Concomitant]

REACTIONS (1)
  - Anaemia [Unknown]
